FAERS Safety Report 7529118-1 (Version None)
Quarter: 2011Q2

REPORT INFORMATION
  Report Type: 
  Country: None (occurrence: None)
  Receive Date: 20110607
  Receipt Date: 20050418
  Transmission Date: 20111010
  Serious: Yes (Death)
  Sender: FDA-Public Use
  Company Number: PHEH2005US04502

PATIENT
  Sex: Female

DRUGS (3)
  1. CLOZARIL [Suspect]
     Dosage: UNK
     Route: 048
  2. RISPERDAL [Concomitant]
  3. EFFEXOR [Concomitant]

REACTIONS (3)
  - FAILURE TO THRIVE [None]
  - DEMENTIA [None]
  - CARDIAC DISORDER [None]
